FAERS Safety Report 6362176-9 (Version None)
Quarter: 2009Q3

REPORT INFORMATION
  Report Type: 
  Country: None (occurrence: None)
  Receive Date: 20090918
  Receipt Date: 20090910
  Transmission Date: 20100115
  Serious: Yes (Other)
  Sender: FDA-Public Use
  Company Number: US-ABBOTT-09P-163-0596245-00

PATIENT
  Age: 64 Year
  Sex: Female

DRUGS (9)
  1. VICODIN [Suspect]
     Indication: DRUG USE FOR UNKNOWN INDICATION
  2. JANUVIA [Suspect]
     Indication: DRUG USE FOR UNKNOWN INDICATION
  3. CORICIDIN HBP CHEST CONGESTION + COUGH [Suspect]
     Indication: COUGH
     Route: 048
     Dates: start: 20090815, end: 20090815
  4. CORICIDIN HBP CHEST CONGESTION + COUGH [Suspect]
     Indication: PYREXIA
  5. CORICIDIN HBP CHEST CONGESTION + COUGH [Suspect]
     Indication: CHILLS
  6. FENTANYL [Suspect]
     Indication: DRUG USE FOR UNKNOWN INDICATION
     Dosage: PATCH
  7. HYZAAR [Concomitant]
     Indication: DRUG USE FOR UNKNOWN INDICATION
  8. LOPRESSOR [Concomitant]
     Indication: DRUG USE FOR UNKNOWN INDICATION
  9. ZOCOR [Concomitant]
     Indication: DRUG USE FOR UNKNOWN INDICATION

REACTIONS (4)
  - DISORIENTATION [None]
  - EYE ROLLING [None]
  - LOSS OF CONSCIOUSNESS [None]
  - SOMNOLENCE [None]
